FAERS Safety Report 12476733 (Version 2)
Quarter: 2016Q3

REPORT INFORMATION
  Report Type: Spontaneous
  Country: US (occurrence: US)
  Receive Date: 20160617
  Receipt Date: 20160713
  Transmission Date: 20161109
  Serious: Yes (Other)
  Sender: FDA-Public Use
  Company Number: US-ASTELLAS-2016US009017

PATIENT
  Sex: Male

DRUGS (4)
  1. XTANDI [Suspect]
     Active Substance: ENZALUTAMIDE
     Indication: PROSTATE CANCER
     Route: 048
     Dates: start: 20160217
  2. XTANDI [Suspect]
     Active Substance: ENZALUTAMIDE
     Indication: COLON CANCER
     Route: 048
     Dates: start: 20160318
  3. ALEVE [Concomitant]
     Active Substance: NAPROXEN SODIUM
     Indication: ARTHRITIS
     Dosage: UNK UNK, AT BEDTIME
     Route: 065
  4. BENADRYL [Suspect]
     Active Substance: DIPHENHYDRAMINE HYDROCHLORIDE
     Indication: INSOMNIA
     Dosage: UNK UNK, UNKNOWN FREQ.
     Route: 065

REACTIONS (11)
  - Abdominal discomfort [Recovered/Resolved]
  - Initial insomnia [Recovering/Resolving]
  - Agitation [Recovering/Resolving]
  - Muscle twitching [Recovering/Resolving]
  - Neuropathy peripheral [Not Recovered/Not Resolved]
  - Vomiting [Recovering/Resolving]
  - Feeling abnormal [Recovering/Resolving]
  - Nausea [Recovered/Resolved]
  - Drug dose omission [Unknown]
  - Urinary tract disorder [Unknown]
  - Insomnia [Unknown]
